FAERS Safety Report 22066224 (Version 1)
Quarter: 2023Q1

REPORT INFORMATION
  Report Type: Spontaneous
  Country: US (occurrence: None)
  Receive Date: 20230306
  Receipt Date: 20230306
  Transmission Date: 20230418
  Serious: Yes (Hospitalization, Other)
  Sender: FDA-Public Use
  Company Number: None

PATIENT
  Age: 56 Year
  Sex: Female
  Weight: 87.75 kg

DRUGS (9)
  1. VYEPTI [Suspect]
     Active Substance: EPTINEZUMAB-JJMR
     Indication: Migraine
     Dosage: OTHER FREQUENCY : EVERY 3 MONTHS;?OTHER ROUTE : INFUSION;?
     Route: 050
     Dates: start: 20230303, end: 20230303
  2. GABAPENTIN [Concomitant]
     Active Substance: GABAPENTIN
  3. ASPIRIN [Concomitant]
     Active Substance: ASPIRIN
  4. ATORVASTATIN [Concomitant]
     Active Substance: ATORVASTATIN
  5. UBRELVY [Concomitant]
     Active Substance: UBROGEPANT
  6. MAGNESIUM OXIDE [Concomitant]
     Active Substance: MAGNESIUM OXIDE
  7. ZYRTEC [Concomitant]
     Active Substance: CETIRIZINE HYDROCHLORIDE
  8. VITAMIN B2 [Concomitant]
     Active Substance: RIBOFLAVIN
  9. VITAMINS [Concomitant]
     Active Substance: VITAMINS

REACTIONS (6)
  - Infusion related reaction [None]
  - Pruritus [None]
  - Throat irritation [None]
  - Swollen tongue [None]
  - Hemiparesis [None]
  - Hemiplegic migraine [None]

NARRATIVE: CASE EVENT DATE: 20230303
